FAERS Safety Report 14261912 (Version 1)
Quarter: 2017Q4

REPORT INFORMATION
  Report Type: Spontaneous
  Country: US (occurrence: US)
  Receive Date: 20171208
  Receipt Date: 20171208
  Transmission Date: 20180321
  Serious: No
  Sender: FDA-Public Use
  Company Number: US-SHIRE-US201728033

PATIENT
  Age: 63 Year
  Sex: Female

DRUGS (1)
  1. NATPARA (PARATHYROID HORMONE) [Suspect]
     Active Substance: PARATHYROID HORMONE
     Indication: PRODUCT USED FOR UNKNOWN INDICATION
     Dosage: 50 ?G, 1X/DAY:QD
     Route: 065

REACTIONS (8)
  - Confusional state [Unknown]
  - Fatigue [Unknown]
  - Tremor [Unknown]
  - Chills [Unknown]
  - Flushing [Unknown]
  - Blood calcium increased [Unknown]
  - Paraesthesia [Unknown]
  - Visual impairment [Unknown]

NARRATIVE: CASE EVENT DATE: 20170915
